FAERS Safety Report 17942545 (Version 2)
Quarter: 2020Q2

REPORT INFORMATION
  Report Type: Spontaneous
  Country: CN (occurrence: CN)
  Receive Date: 20200624
  Receipt Date: 20200630
  Transmission Date: 20200714
  Serious: Yes (Other)
  Sender: FDA-Public Use
  Company Number: CN-PFIZER INC-2020240016

PATIENT
  Age: 83 Year
  Sex: Male
  Weight: 67 kg

DRUGS (2)
  1. PREGABALIN. [Suspect]
     Active Substance: PREGABALIN
     Indication: POST HERPETIC NEURALGIA
     Dosage: 75 MG, 2X/DAY
     Dates: start: 20200526
  2. PREGABALIN. [Suspect]
     Active Substance: PREGABALIN
     Dosage: 150 MG, 2X/DAY
     Route: 048
     Dates: start: 20200601, end: 20200607

REACTIONS (6)
  - Confusional state [Recovering/Resolving]
  - Dizziness [Recovering/Resolving]
  - Pyrexia [Recovering/Resolving]
  - Vision blurred [Recovering/Resolving]
  - Disorganised speech [Recovering/Resolving]
  - Asthenia [Recovering/Resolving]

NARRATIVE: CASE EVENT DATE: 20200604
